FAERS Safety Report 6909192-3 (Version None)
Quarter: 2010Q3

REPORT INFORMATION
  Report Type: 
  Country: None (occurrence: None)
  Receive Date: 20100805
  Receipt Date: 20100723
  Transmission Date: 20110219
  Serious: Yes (Other)
  Sender: FDA-Public Use
  Company Number: DE-WATSON-2010-10426

PATIENT
  Age: 79 Year
  Sex: Female

DRUGS (9)
  1. SIMVASTATIN (WATSON LABORATORIES) [Suspect]
     Indication: CORONARY ARTERY DISEASE
     Dosage: 20 MG, DAILY
     Route: 048
     Dates: start: 20090901
  2. OMEPRAZOL                          /00661201/ [Suspect]
     Indication: EXTRANODAL MARGINAL ZONE B-CELL LYMPHOMA (MALT TYPE)
     Dosage: 40 MG, DAILY
     Route: 048
     Dates: start: 20050101
  3. METOPROLOL SUCCINATE [Suspect]
     Indication: CORONARY ARTERY DISEASE
     Dosage: 47 1/2 MG, BID
     Route: 048
     Dates: start: 20090301
  4. METFORMIN HCL [Concomitant]
     Indication: PRODUCT USED FOR UNKNOWN INDICATION
     Dosage: 2 1/2 DF, DAILY
  5. GLIMEPIRIDE [Concomitant]
     Indication: PRODUCT USED FOR UNKNOWN INDICATION
     Dosage: 1 1/2 DF, UNK
  6. ASPIRIN [Concomitant]
     Indication: PRODUCT USED FOR UNKNOWN INDICATION
     Dosage: 1 DF, DAILY
  7. HCT [Concomitant]
     Indication: PRODUCT USED FOR UNKNOWN INDICATION
     Dosage: 1 DF, DAILY
  8. CORIFEO [Concomitant]
     Indication: PRODUCT USED FOR UNKNOWN INDICATION
     Dosage: 1/2 DF, DAILY
  9. RAMIPRIL [Concomitant]
     Indication: PRODUCT USED FOR UNKNOWN INDICATION
     Dosage: 1 DF, DAILY

REACTIONS (1)
  - PATHOLOGICAL FRACTURE [None]
